FAERS Safety Report 20764090 (Version 14)
Quarter: 2023Q4

REPORT INFORMATION
  Report Type: Spontaneous
  Country: US (occurrence: US)
  Receive Date: 20220428
  Receipt Date: 20231106
  Transmission Date: 20240110
  Serious: Yes (Death, Hospitalization, Other)
  Sender: FDA-Public Use
  Company Number: US-PFIZER INC-202200354515

PATIENT
  Age: 57 Year
  Sex: Female
  Weight: 96.599 kg

DRUGS (2)
  1. IBRANCE [Suspect]
     Active Substance: PALBOCICLIB
     Indication: Breast cancer metastatic
     Dosage: 125 MG, 1X/DAY, (3X7 UD (AS DIRECTED) TAB 21]
     Dates: start: 202112
  2. IBRANCE [Suspect]
     Active Substance: PALBOCICLIB
     Dosage: 125 MG

REACTIONS (28)
  - Neoplasm progression [Fatal]
  - Intestinal obstruction [Unknown]
  - Neuropathy peripheral [Not Recovered/Not Resolved]
  - Colon operation [Unknown]
  - Fatigue [Not Recovered/Not Resolved]
  - Anxiety [Not Recovered/Not Resolved]
  - Oral discomfort [Not Recovered/Not Resolved]
  - Burning sensation [Not Recovered/Not Resolved]
  - Discomfort [Not Recovered/Not Resolved]
  - Pain [Not Recovered/Not Resolved]
  - Decreased appetite [Not Recovered/Not Resolved]
  - Ageusia [Not Recovered/Not Resolved]
  - Depression [Not Recovered/Not Resolved]
  - Food craving [Not Recovered/Not Resolved]
  - Pain in extremity [Not Recovered/Not Resolved]
  - Oral pain [Not Recovered/Not Resolved]
  - Road traffic accident [Unknown]
  - Gait disturbance [Unknown]
  - Blood potassium decreased [Unknown]
  - Lymphoedema [Unknown]
  - Musculoskeletal stiffness [Unknown]
  - Localised infection [Unknown]
  - White blood cell count decreased [Unknown]
  - Weight decreased [Unknown]
  - Decreased appetite [Unknown]
  - Diarrhoea [Unknown]
  - Blood glucose increased [Unknown]
  - Vision blurred [Unknown]

NARRATIVE: CASE EVENT DATE: 20230101
